FAERS Safety Report 18771026 (Version 4)
Quarter: 2021Q4

REPORT INFORMATION
  Report Type: Report from Study
  Country: US (occurrence: US)
  Receive Date: 20210121
  Receipt Date: 20211214
  Transmission Date: 20220303
  Serious: No
  Sender: FDA-Public Use
  Company Number: NVSC2021US012375

PATIENT
  Sex: Female

DRUGS (1)
  1. ENTRESTO [Suspect]
     Active Substance: SACUBITRIL\VALSARTAN
     Indication: Cardiac failure
     Dosage: 1 DF, BID(49/51 MG)
     Route: 048
     Dates: start: 202001

REACTIONS (7)
  - Initial insomnia [Unknown]
  - Weight increased [Unknown]
  - Depression [Unknown]
  - Full blood count decreased [Unknown]
  - Blood iron decreased [Unknown]
  - Throat clearing [Unknown]
  - Rhinorrhoea [Unknown]
